FAERS Safety Report 20388202 (Version 1)
Quarter: 2022Q1

REPORT INFORMATION
  Report Type: Spontaneous
  Country: US (occurrence: US)
  Receive Date: 20220128
  Receipt Date: 20220128
  Transmission Date: 20220423
  Serious: No
  Sender: FDA-Public Use
  Company Number: US-ALLERGAN-2117803US

PATIENT

DRUGS (1)
  1. BOTOX COSMETIC [Suspect]
     Active Substance: ONABOTULINUMTOXINA
     Indication: Product used for unknown indication
     Dosage: 20 UNITS, SINGLE
     Dates: start: 20210303, end: 20210303

REACTIONS (5)
  - Multiple use of single-use product [Unknown]
  - Wrong technique in product usage process [Unknown]
  - Product preparation error [Unknown]
  - Poor quality product administered [Unknown]
  - Drug ineffective [Unknown]
